FAERS Safety Report 4302894-7 (Version None)
Quarter: 2004Q1

REPORT INFORMATION
  Report Type: 
  Country: None (occurrence: None)
  Receive Date: 20040126
  Receipt Date: 20030925
  Transmission Date: 20041129
  Serious: No
  Sender: FDA-Public Use
  Company Number: USA030948230

PATIENT
  Age: 12 Year
  Sex: Male
  Weight: 45 kg

DRUGS (3)
  1. STRATTERA [Suspect]
     Dosage: 40 MG
  2. CONCERTA [Concomitant]
  3. EFFEXOR [Concomitant]

REACTIONS (4)
  - DYSARTHRIA [None]
  - FACIAL PALSY [None]
  - HYPOAESTHESIA [None]
  - VISION BLURRED [None]
